FAERS Safety Report 4981678-0 (Version None)
Quarter: 2006Q2

REPORT INFORMATION
  Report Type: 
  Country: None (occurrence: None)
  Receive Date: 20060425
  Receipt Date: 20060413
  Transmission Date: 20061013
  Serious: Yes (Other)
  Sender: FDA-Public Use
  Company Number: GB-BRISTOL-MYERS SQUIBB COMPANY-13346085

PATIENT
  Sex: Female

DRUGS (3)
  1. BUSPAR [Suspect]
     Route: 048
  2. REBOXETINE [Concomitant]
  3. ADALAT [Concomitant]

REACTIONS (3)
  - COLOSTOMY [None]
  - CONSTIPATION [None]
  - INTESTINAL OBSTRUCTION [None]
